FAERS Safety Report 24399692 (Version 2)
Quarter: 2024Q4

REPORT INFORMATION
  Report Type: Spontaneous
  Country: FI (occurrence: FI)
  Receive Date: 20241005
  Receipt Date: 20241021
  Transmission Date: 20250115
  Serious: Yes (Other)
  Sender: TEVA
  Company Number: FI-TEVA-VS-3249394

PATIENT
  Age: 75 Year
  Sex: Female

DRUGS (4)
  1. RAMIPRIL [Suspect]
     Active Substance: RAMIPRIL
     Indication: Blood pressure abnormal
     Dosage: RATIOPHARM
     Route: 048
     Dates: start: 202405
  2. Neurotol [Concomitant]
     Indication: Product used for unknown indication
     Dosage: NEUROTOL SLOW
     Dates: start: 202405
  3. CLONAZEPAM [Concomitant]
     Active Substance: CLONAZEPAM
     Indication: Product used for unknown indication
     Dates: start: 202405
  4. CARDIZEM [Concomitant]
     Active Substance: DILTIAZEM HYDROCHLORIDE
     Indication: Product used for unknown indication
     Dates: start: 202405

REACTIONS (9)
  - Hemiplegic migraine [Not Recovered/Not Resolved]
  - Diarrhoea [Not Recovered/Not Resolved]
  - Drug effect less than expected [Unknown]
  - Weight decreased [Not Recovered/Not Resolved]
  - Mucosal disorder [Not Recovered/Not Resolved]
  - Swollen tongue [Unknown]
  - Craniofacial fracture [Not Recovered/Not Resolved]
  - Asthma [Unknown]
  - Lip injury [Not Recovered/Not Resolved]

NARRATIVE: CASE EVENT DATE: 20240101
